FAERS Safety Report 11323242 (Version 1)
Quarter: 2015Q3

REPORT INFORMATION
  Report Type: Spontaneous
  Country: US (occurrence: US)
  Receive Date: 20150730
  Receipt Date: 20150730
  Transmission Date: 20151125
  Serious: No
  Sender: FDA-Public Use
  Company Number: US-MYLANLABS-2014M1009264

PATIENT
  Sex: Female
  Weight: 61 kg

DRUGS (3)
  1. VITAMINS                           /00067501/ [Concomitant]
     Active Substance: VITAMINS
     Dosage: UNK
  2. CALCIUM ALGINATE [Concomitant]
     Active Substance: CALCIUM ALGINATE
     Dosage: UNK
  3. LEVOTHYROXINE SODIUM. [Suspect]
     Active Substance: LEVOTHYROXINE SODIUM
     Indication: THYROID THERAPY
     Dosage: 88 ?G, QD
     Route: 048
     Dates: start: 2010, end: 2010

REACTIONS (4)
  - Alopecia [Recovered/Resolved]
  - Fatigue [Recovered/Resolved]
  - Drug effect decreased [Recovered/Resolved]
  - Blood test abnormal [Recovered/Resolved]

NARRATIVE: CASE EVENT DATE: 2010
